FAERS Safety Report 7237521-2 (Version None)
Quarter: 2011Q1

REPORT INFORMATION
  Report Type: 
  Country: None (occurrence: None)
  Receive Date: 20110121
  Receipt Date: 20110112
  Transmission Date: 20110831
  Serious: Yes (Hospitalization)
  Sender: FDA-Public Use
  Company Number: FR-PFIZER INC-2010160067

PATIENT
  Age: 8 Year
  Sex: Female
  Weight: 24 kg

DRUGS (3)
  1. JOSACIN [Suspect]
     Indication: MYCOPLASMA INFECTION
     Dosage: UNK
     Route: 048
     Dates: start: 20100513, end: 20100517
  2. PERFALGAN [Suspect]
     Dosage: 80 MG/KG, 1X/DAY
     Route: 042
     Dates: start: 20100513, end: 20100524
  3. ADVIL [Suspect]
     Dosage: UNK
     Route: 048
     Dates: start: 20090901, end: 20100512

REACTIONS (3)
  - CHOLESTASIS [None]
  - STEVENS-JOHNSON SYNDROME [None]
  - CYTOLYTIC HEPATITIS [None]
